FAERS Safety Report 10245184 (Version 1)
Quarter: 2014Q2

REPORT INFORMATION
  Report Type: Report from Study
  Country: US (occurrence: US)
  Receive Date: 20140618
  Receipt Date: 20140618
  Transmission Date: 20141212
  Serious: Yes (Other)
  Sender: FDA-Public Use
  Company Number: US-ABBVIE-14P-163-1246503-00

PATIENT
  Sex: Female
  Weight: 45.4 kg

DRUGS (5)
  1. CREON [Suspect]
     Indication: PANCREATITIS
     Dosage: 1 CAPSULE 2 TIMES A DAY
     Route: 048
     Dates: start: 2009
  2. UNKNOWN BLOOD PRESSURE MEDICATION [Concomitant]
     Indication: BLOOD PRESSURE
  3. UNKNOWN MEDICATION FOR LEG CRAMPS [Concomitant]
     Indication: MUSCLE SPASMS
  4. LUTEIN [Concomitant]
     Indication: PRODUCT USED FOR UNKNOWN INDICATION
  5. PRILOSEC [Concomitant]
     Indication: PRODUCT USED FOR UNKNOWN INDICATION

REACTIONS (3)
  - Blindness [Not Recovered/Not Resolved]
  - Macular degeneration [Not Recovered/Not Resolved]
  - Visual acuity reduced [Recovered/Resolved]
